FAERS Safety Report 4396653-7 (Version None)
Quarter: 2004Q3

REPORT INFORMATION
  Report Type: 
  Country: None (occurrence: None)
  Receive Date: 20040713
  Receipt Date: 20040713
  Transmission Date: 20050211
  Serious: No
  Sender: FDA-Public Use
  Company Number: None

PATIENT
  Age: 69 Year
  Sex: Female

DRUGS (3)
  1. LEXAPRO [Suspect]
     Indication: DEPRESSION
     Dosage: QD
     Dates: start: 20040224
  2. LEXAPRO [Suspect]
     Indication: DEPRESSION
     Dosage: QD
     Dates: start: 20040318
  3. UNISOM [Concomitant]

REACTIONS (4)
  - ARTHRALGIA [None]
  - BACK PAIN [None]
  - FEELING ABNORMAL [None]
  - MUSCLE CRAMP [None]
